FAERS Safety Report 7918779-0 (Version None)
Quarter: 2011Q4

REPORT INFORMATION
  Report Type: 
  Country: None (occurrence: None)
  Receive Date: 20111116
  Receipt Date: 20111108
  Transmission Date: 20120403
  Serious: Yes (Hospitalization, Other)
  Sender: FDA-Public Use
  Company Number: US-SANOFI-AVENTIS-2011SA072701

PATIENT
  Age: 55 Year
  Sex: Male
  Weight: 113 kg

DRUGS (4)
  1. VYTORIN [Concomitant]
     Dates: start: 20070604
  2. LANTUS [Suspect]
     Route: 058
     Dates: start: 20100314
  3. SOLOSTAR [Suspect]
     Dates: start: 20100314
  4. METFORMIN HCL [Concomitant]
     Dates: start: 20051229

REACTIONS (5)
  - RENAL MASS [None]
  - BLOOD GLUCOSE INCREASED [None]
  - HYPERTENSION [None]
  - DRUG INEFFECTIVE [None]
  - PRODUCT QUALITY ISSUE [None]
